FAERS Safety Report 11530985 (Version 1)
Quarter: 2015Q3

REPORT INFORMATION
  Report Type: Report from Study
  Country: US (occurrence: US)
  Receive Date: 20150921
  Receipt Date: 20150921
  Transmission Date: 20151125
  Serious: Yes (Death, Hospitalization)
  Sender: FDA-Public Use
  Company Number: US-CELGENE-USA-2015093022

PATIENT
  Age: 75 Year
  Sex: Male
  Weight: 79.4 kg

DRUGS (13)
  1. HYDROMORPHONE [Concomitant]
     Active Substance: HYDROMORPHONE
     Indication: PAIN
     Route: 065
     Dates: start: 20150803
  2. HYDROCODONE BITARTRATE AND ACETAMINOPHEN [Concomitant]
     Active Substance: ACETAMINOPHEN\HYDROCODONE BITARTRATE
     Indication: PAIN
     Dosage: 5-300 MG
     Route: 065
     Dates: start: 20150804
  3. NIVOLUMAB [Suspect]
     Active Substance: NIVOLUMAB
     Indication: NON-SMALL CELL LUNG CANCER
     Route: 041
     Dates: start: 20150707
  4. HEPARIN [Concomitant]
     Active Substance: HEPARIN SODIUM
     Indication: PAIN
     Route: 041
     Dates: start: 20150807
  5. ENTINOSTAT [Suspect]
     Active Substance: ENTINOSTAT
     Indication: NON-SMALL CELL LUNG CANCER
     Route: 065
  6. CHOLECALCIFEROL [Concomitant]
     Active Substance: CHOLECALCIFEROL
     Indication: SUPPLEMENTATION THERAPY
     Route: 065
  7. NIVOLUMAB [Suspect]
     Active Substance: NIVOLUMAB
     Route: 041
     Dates: start: 20150811
  8. NAPROXEN SODIUM. [Concomitant]
     Active Substance: NAPROXEN SODIUM
     Indication: PAIN
     Route: 065
     Dates: start: 201506
  9. VIDAZA [Suspect]
     Active Substance: AZACITIDINE
     Indication: NON-SMALL CELL LUNG CANCER
     Route: 048
  10. BENZONATATE. [Concomitant]
     Active Substance: BENZONATATE
     Indication: COUGH
     Route: 065
     Dates: start: 201506
  11. GUAIFENESIN-DEXTROMETHORPHAN [Concomitant]
     Indication: COUGH
     Dosage: 10-100MG/5ML
     Route: 065
     Dates: start: 201506
  12. DICLOFENAC EPOLAMINE [Concomitant]
     Active Substance: DICLOFENAC EPOLAMINE
     Indication: SUPPLEMENTATION THERAPY
     Route: 065
     Dates: start: 201507
  13. LANSOPRAZOLE. [Concomitant]
     Active Substance: LANSOPRAZOLE
     Indication: DYSPEPSIA
     Route: 065
     Dates: start: 201506

REACTIONS (1)
  - Respiratory failure [Fatal]

NARRATIVE: CASE EVENT DATE: 20150903
